FAERS Safety Report 5489524-6 (Version None)
Quarter: 2007Q4

REPORT INFORMATION
  Report Type: 
  Country: None (occurrence: None)
  Receive Date: 20071016
  Receipt Date: 20071016
  Transmission Date: 20080405
  Serious: No
  Sender: FDA-Public Use
  Company Number: None

PATIENT

DRUGS (5)
  1. SUTENT [Suspect]
  2. INSULIN [Concomitant]
  3. KEPPRA [Concomitant]
  4. VASOTECH [Concomitant]
  5. HYDROCHLOROTHIAZIDE [Concomitant]

REACTIONS (1)
  - CHOLECYSTITIS INFECTIVE [None]
